FAERS Safety Report 11220717 (Version 1)
Quarter: 2015Q2

REPORT INFORMATION
  Report Type: Spontaneous
  Country: CA (occurrence: CA)
  Receive Date: 20150626
  Receipt Date: 20150626
  Transmission Date: 20150821
  Serious: Yes (Other)
  Sender: FDA-Public Use
  Company Number: CA-ROCHE-1569789

PATIENT
  Sex: Male

DRUGS (12)
  1. SYMBICORT [Concomitant]
     Active Substance: BUDESONIDE\FORMOTEROL FUMARATE DIHYDRATE
  2. TAMSULOSIN [Concomitant]
     Active Substance: TAMSULOSIN
  3. MONTELUKAST [Concomitant]
     Active Substance: MONTELUKAST SODIUM
  4. XOLAIR [Suspect]
     Active Substance: OMALIZUMAB
     Indication: ASTHMA
     Route: 058
     Dates: start: 20140418
  5. PREDNISOLONE. [Concomitant]
     Active Substance: PREDNISOLONE
  6. VENTOLIN [Concomitant]
     Active Substance: ALBUTEROL SULFATE
  7. ASPIRIN. [Concomitant]
     Active Substance: ASPIRIN
  8. SERAX (CANADA) [Concomitant]
  9. PANTOLOC [Concomitant]
     Active Substance: PANTOPRAZOLE SODIUM
  10. SPIRIVA [Concomitant]
     Active Substance: TIOTROPIUM BROMIDE MONOHYDRATE
  11. AVODART [Concomitant]
     Active Substance: DUTASTERIDE
  12. VERAPAMIL [Concomitant]
     Active Substance: VERAPAMIL HYDROCHLORIDE

REACTIONS (5)
  - Influenza [Recovering/Resolving]
  - Productive cough [Unknown]
  - Prolonged expiration [Unknown]
  - Dyspnoea at rest [Unknown]
  - Dysphonia [Unknown]

NARRATIVE: CASE EVENT DATE: 2015
